FAERS Safety Report 20764522 (Version 2)
Quarter: 2022Q2

REPORT INFORMATION
  Report Type: Spontaneous
  Country: DE (occurrence: DE)
  Receive Date: 20220428
  Receipt Date: 20220613
  Transmission Date: 20220721
  Serious: Yes (Death, Hospitalization, Other)
  Sender: FDA-Public Use
  Company Number: DE-AMGEN-DEUSP2022069790

PATIENT

DRUGS (5)
  1. FILGRASTIM [Suspect]
     Active Substance: FILGRASTIM
     Indication: Neutropenia
     Dosage: UNK
     Route: 065
  2. ABIRATERONE [Concomitant]
     Active Substance: ABIRATERONE
     Indication: Hormone-refractory prostate cancer
  3. ENZALUTAMIDE [Concomitant]
     Active Substance: ENZALUTAMIDE
     Indication: Hormone-refractory prostate cancer
  4. DOCETAXEL [Concomitant]
     Active Substance: DOCETAXEL
     Indication: Hormone-refractory prostate cancer
  5. CABAZITAXEL [Concomitant]
     Active Substance: CABAZITAXEL
     Indication: Hormone-refractory prostate cancer

REACTIONS (10)
  - Death [Fatal]
  - Neutropenia [Unknown]
  - Gastroenteritis [Unknown]
  - Thrombocytopenia [Unknown]
  - Sepsis [Unknown]
  - Anaemia [Unknown]
  - Fatigue [Unknown]
  - Nausea [Unknown]
  - Vomiting [Unknown]
  - Diarrhoea [Unknown]
